FAERS Safety Report 9351347 (Version 2)
Quarter: 2015Q2

REPORT INFORMATION
  Report Type: Spontaneous
  Country: IE (occurrence: IE)
  Receive Date: 20130617
  Receipt Date: 20150416
  Transmission Date: 20150821
  Serious: Yes (Death, Hospitalization)
  Sender: FDA-Public Use
  Company Number: PHHY2013IE060773

PATIENT
  Age: 72 Year
  Sex: Male

DRUGS (11)
  1. ESOMEPRAZOLE [Concomitant]
     Active Substance: ESOMEPRAZOLE
     Indication: DYSPEPSIA
     Route: 065
  2. ATORVASTATIN [Concomitant]
     Active Substance: ATORVASTATIN
     Indication: PRODUCT USED FOR UNKNOWN INDICATION
     Route: 065
  3. CALCIUM ACETATE. [Concomitant]
     Active Substance: CALCIUM ACETATE
     Indication: PRODUCT USED FOR UNKNOWN INDICATION
     Route: 065
  4. CIPROFLOXACIN. [Suspect]
     Active Substance: CIPROFLOXACIN
     Indication: LOWER RESPIRATORY TRACT INFECTION
     Dosage: 500 MG, BID
     Route: 065
  5. ALFACALCIDOL [Concomitant]
     Active Substance: ALFACALCIDOL
     Indication: PRODUCT USED FOR UNKNOWN INDICATION
     Route: 065
  6. DARBEPOETIN ALFA [Concomitant]
     Active Substance: DARBEPOETIN ALFA
     Indication: PRODUCT USED FOR UNKNOWN INDICATION
     Route: 065
  7. ASPIRIN. [Concomitant]
     Active Substance: ASPIRIN
     Indication: PRODUCT USED FOR UNKNOWN INDICATION
     Route: 065
  8. SEVELAMER [Concomitant]
     Active Substance: SEVELAMER
     Indication: PRODUCT USED FOR UNKNOWN INDICATION
     Route: 065
  9. PREGABALIN. [Concomitant]
     Active Substance: PREGABALIN
     Indication: PRODUCT USED FOR UNKNOWN INDICATION
     Route: 065
  10. GLICLAZIDE [Concomitant]
     Active Substance: GLICLAZIDE
     Indication: PRODUCT USED FOR UNKNOWN INDICATION
     Route: 065
  11. FOLIC ACID. [Concomitant]
     Active Substance: FOLIC ACID
     Indication: PRODUCT USED FOR UNKNOWN INDICATION
     Route: 065

REACTIONS (8)
  - Acute myocardial infarction [Fatal]
  - Choreoathetosis [Recovered/Resolved]
  - Movement disorder [Recovered/Resolved]
  - Tremor [Recovered/Resolved]
  - Insomnia [Unknown]
  - Cardiogenic shock [Fatal]
  - Restlessness [Recovered/Resolved]
  - Asthenia [Unknown]
